FAERS Safety Report 8543985 (Version 2)
Quarter: 2012Q4

REPORT INFORMATION
  Report Type: 
  Country: SE (occurrence: SE)
  Receive Date: 20120503
  Receipt Date: 20120904
  Transmission Date: 20130627
  Serious: Yes (Other)
  Sender: FDA-Public Use
  Company Number: SE-PFIZER INC-2012106561

PATIENT
  Sex: Female

DRUGS (2)
  1. CORDARONE [Suspect]
     Indication: ATRIAL FIBRILLATION
     Dosage: UNK
     Dates: end: 20110905
  2. CORDARONE [Suspect]
     Indication: ATRIAL FLUTTER

REACTIONS (3)
  - Hyperthyroidism [Unknown]
  - Visual impairment [Unknown]
  - Cerebellar infarction [Unknown]
